FAERS Safety Report 22615282 (Version 4)
Quarter: 2024Q1

REPORT INFORMATION
  Report Type: Other
  Country: CA (occurrence: None)
  Receive Date: 20230619
  Receipt Date: 20240205
  Transmission Date: 20240410
  Serious: Yes (Life-Threatening, Hospitalization, Other)
  Sender: FDA-Public Use
  Company Number: CA-ROCHE-3367153

PATIENT
  Age: 35 Year
  Sex: Female

DRUGS (2)
  1. RITUXIMAB [Suspect]
     Active Substance: RITUXIMAB
     Indication: Myasthenia gravis
     Route: 042
  2. PREDNISONE [Suspect]
     Active Substance: PREDNISONE
     Indication: Myasthenia gravis
     Route: 065

REACTIONS (10)
  - Off label use [Unknown]
  - Drug ineffective [Unknown]
  - Bacteraemia [Unknown]
  - Oral herpes [Unknown]
  - Respiratory tract infection [Unknown]
  - Pharyngitis [Unknown]
  - Treatment failure [Unknown]
  - Carpal tunnel syndrome [Unknown]
  - Premature menopause [Unknown]
  - Dyspnoea exertional [Unknown]
